FAERS Safety Report 5106269-2 (Version None)
Quarter: 2006Q3

REPORT INFORMATION
  Report Type: 
  Country: None (occurrence: None)
  Receive Date: 20060918
  Receipt Date: 20041130
  Transmission Date: 20061208
  Serious: Yes (Disabling, Other)
  Sender: FDA-Public Use
  Company Number: US-BAYER-200421094BWH

PATIENT
  Sex: Male

DRUGS (1)
  1. LEVITRA [Suspect]
     Indication: ERECTILE DYSFUNCTION
     Dosage: AS USED: 10 MG  UNIT DOSE: 10 MG
     Route: 048

REACTIONS (3)
  - HYPOTENSION [None]
  - RETINAL ISCHAEMIA [None]
  - VISUAL ACUITY REDUCED [None]
